FAERS Safety Report 21577593 (Version 1)
Quarter: 2022Q4

REPORT INFORMATION
  Report Type: Report from Study
  Country: US (occurrence: US)
  Receive Date: 20221110
  Receipt Date: 20221110
  Transmission Date: 20230113
  Serious: Yes (Other)
  Sender: FDA-Public Use
  Company Number: US-UCBSA-2022063690

PATIENT
  Age: 0 Year
  Sex: Female

DRUGS (1)
  1. FINTEPLA [Suspect]
     Active Substance: FENFLURAMINE
     Indication: Product used for unknown indication
     Dosage: 2 MILLILITER, 2X/DAY (BID)
     Dates: start: 2022

REACTIONS (4)
  - Atonic seizures [Not Recovered/Not Resolved]
  - Mood altered [Not Recovered/Not Resolved]
  - Head injury [Not Recovered/Not Resolved]
  - Staring [Not Recovered/Not Resolved]

NARRATIVE: CASE EVENT DATE: 20221031
